FAERS Safety Report 6382260-3 (Version None)
Quarter: 2009Q3

REPORT INFORMATION
  Report Type: 
  Country: None (occurrence: None)
  Receive Date: 20090925
  Receipt Date: 20090910
  Transmission Date: 20100115
  Serious: Yes (Hospitalization)
  Sender: FDA-Public Use
  Company Number: 2009BM000152

PATIENT
  Age: 57 Year
  Sex: Male
  Weight: 50 kg

DRUGS (16)
  1. KUVAN [Suspect]
     Indication: PHENYLKETONURIA
     Dosage: 1100 MG; QD; PO
     Route: 048
     Dates: start: 20081001, end: 20090702
  2. KUVAN [Suspect]
     Indication: PHENYLKETONURIA
     Dosage: 1100 MG; QD; PO
     Route: 048
     Dates: start: 20090706, end: 20090728
  3. KUVAN [Suspect]
     Indication: PHENYLKETONURIA
     Dosage: 1100 MG; QD; PO
     Route: 048
     Dates: start: 20090828
  4. SYNTHROID [Concomitant]
  5. FLOMAX /01280302/ [Concomitant]
  6. CALCIFEROL [Concomitant]
  7. ARTANE [Concomitant]
  8. CALCIUM CARBONATE [Concomitant]
  9. PROTONIX /01263201/ [Concomitant]
  10. MEGESTROL ACETATE [Concomitant]
  11. TOPAMAX [Concomitant]
  12. LORAZEPAM [Concomitant]
  13. PROMETHAZINE DM [Concomitant]
  14. TYLENOL (CAPLET) [Concomitant]
  15. MULTI-VITAMINS [Concomitant]
  16. CALCITRIOL [Concomitant]

REACTIONS (7)
  - DECREASED APPETITE [None]
  - LETHARGY [None]
  - PANCREATITIS [None]
  - PICA [None]
  - REFUSAL OF TREATMENT BY PATIENT [None]
  - UNRESPONSIVE TO STIMULI [None]
  - WEIGHT DECREASED [None]
